FAERS Safety Report 20840003 (Version 2)
Quarter: 2022Q2

REPORT INFORMATION
  Report Type: Report from Study
  Country: DE (occurrence: DE)
  Receive Date: 20220517
  Receipt Date: 20220607
  Transmission Date: 20220721
  Serious: Yes (Hospitalization, Other)
  Sender: FDA-Public Use
  Company Number: DE-BRISTOL-MYERS SQUIBB COMPANY-2022-041429

PATIENT
  Age: 82 Year
  Sex: Male
  Weight: 80 kg

DRUGS (35)
  1. AZACITIDINE [Suspect]
     Active Substance: AZACITIDINE
     Indication: Myelodysplastic syndrome
     Dosage: DAYS 1-5, 8, AND 9 OF EACH 28-DAY CYCLE (36 MG/M2)
     Route: 058
     Dates: start: 20201214, end: 20220318
  2. VENETOCLAX [Suspect]
     Active Substance: VENETOCLAX
     Indication: Myelodysplastic syndrome
     Route: 048
     Dates: start: 20201214, end: 20220317
  3. ALLOPURINOL [Concomitant]
     Active Substance: ALLOPURINOL
     Indication: Prophylaxis
     Route: 048
  4. ALLOPURINOL [Concomitant]
     Active Substance: ALLOPURINOL
     Route: 048
  5. ALLOPURINOL [Concomitant]
     Active Substance: ALLOPURINOL
     Dosage: 100 MG (100 MG,1 IN 1 D)
     Route: 048
     Dates: start: 20201214
  6. POTASSIUM CHLORIDE [Concomitant]
     Active Substance: POTASSIUM CHLORIDE
     Indication: Prophylaxis
     Dosage: 1 IN 1 D
     Route: 048
  7. POTASSIUM CHLORIDE [Concomitant]
     Active Substance: POTASSIUM CHLORIDE
     Dosage: 2 IN 1 D
  8. POTASSIUM CHLORIDE [Concomitant]
     Active Substance: POTASSIUM CHLORIDE
     Dosage: 600 MG (600 MG,1 IN 1 D)
     Route: 048
     Dates: start: 20210301
  9. POTASSIUM CHLORIDE [Concomitant]
     Active Substance: POTASSIUM CHLORIDE
     Dosage: 1200 MG (600 MG,2 IN 1 D)
     Route: 048
     Dates: start: 20210410
  10. ASPIRIN [Concomitant]
     Active Substance: ASPIRIN
     Indication: Coronary artery disease
     Dosage: 1 IN 1 D
     Route: 048
  11. ASPIRIN [Concomitant]
     Active Substance: ASPIRIN
     Dosage: 1 IN 1 D
     Route: 048
  12. ASPIRIN [Concomitant]
     Active Substance: ASPIRIN
     Dosage: 100 MG (100 MG,1 IN 1 D)
     Route: 048
     Dates: start: 20210301
  13. AMPHO-MORONAL [Concomitant]
     Active Substance: AMPHOTERICIN B
     Indication: Mucosal infection
     Dosage: 4 IN 1 D
  14. AMPHO-MORONAL [Concomitant]
     Active Substance: AMPHOTERICIN B
     Dosage: ROUTE; ORAL-TRANSMUCOSAL (10 MG,4 IN 1 D)
     Route: 048
     Dates: start: 20210415
  15. BISOPROLOL [Concomitant]
     Active Substance: BISOPROLOL
     Indication: Atrial fibrillation
     Dosage: 1 IN 1 D
     Route: 048
  16. BISOPROLOL [Concomitant]
     Active Substance: BISOPROLOL
     Route: 048
     Dates: start: 20220403, end: 20220403
  17. VITAMIN D [Concomitant]
     Active Substance: VITAMIN D NOS
     Indication: Prophylaxis
     Dosage: 1000 IU (1000 IU,1 IN 1 D)
     Route: 048
     Dates: start: 20200813
  18. PROSTAGUT [Concomitant]
     Indication: Benign prostatic hyperplasia
     Dosage: 160/120 MG (1 IN 1 D)
     Route: 048
     Dates: start: 20101215
  19. LUTEIN [Concomitant]
     Active Substance: LUTEIN
     Indication: Dry eye
     Dosage: 10 MG (10 MG,1 IN 1 D)
     Route: 048
     Dates: start: 2012
  20. GRANISETRON BETA [Concomitant]
     Indication: Prophylaxis
     Dosage: FREQUENCY; ON AZACITINE DAYS (1 MG)
     Route: 048
     Dates: start: 20201214
  21. SYSTANE (HYPROMELLOSE 2910 (4000 MPA.S)) [Concomitant]
     Active Substance: HYPROMELLOSE 2910 (4000 MPA.S)
     Indication: Dry eye
     Dosage: DOSE; UNKNOWN DROPS (1 IN 1 D)?HYDRATION WETTING DROPS FOR EYES
     Route: 047
     Dates: start: 20200502
  22. TORSEMIDE [Concomitant]
     Active Substance: TORSEMIDE
     Indication: Haematoma
     Dosage: 5 MG (5 MG,1 IN 1 D)
     Route: 047
     Dates: start: 20210301
  23. TORSEMIDE [Concomitant]
     Active Substance: TORSEMIDE
     Indication: Oedema peripheral
     Dosage: 10 MG,1 IN 1 D
     Route: 048
     Dates: start: 20210412
  24. TAMSULOSIN 1A [Concomitant]
     Indication: Benign prostatic hyperplasia
     Dosage: 0.4 MG,1 IN 1 D
     Route: 048
     Dates: start: 20210411
  25. PANTOPRAZOLE SODIUM [Concomitant]
     Active Substance: PANTOPRAZOLE SODIUM
     Indication: Erythema
     Dosage: 80 MG (40 MG,2 IN 1 D)
     Route: 048
     Dates: start: 20210121
  26. PANTOPRAZOLE SODIUM [Concomitant]
     Active Substance: PANTOPRAZOLE SODIUM
     Indication: Gastritis
     Dosage: 80 MG (40 MG,2 IN 1 D)
     Route: 048
     Dates: start: 20210703
  27. RINGER ACETAT [Concomitant]
     Indication: Fluid replacement
     Dosage: 1000 ML (500 ML,2 IN 1 D)
     Dates: start: 20220407
  28. MAGALDRATE [Concomitant]
     Active Substance: MAGALDRATE
     Indication: Gastritis
     Dosage: 10 ML,1 AS REQUIRED
     Route: 048
     Dates: start: 20210121
  29. LACTOSEVEN [Concomitant]
     Indication: Supplementation therapy
     Dosage: 1 TABLET (1 TABLET,1 IN 1 D)
     Route: 048
     Dates: start: 20201230
  30. CEFUROXIME [Concomitant]
     Active Substance: CEFUROXIME
     Indication: Prophylaxis
     Dosage: 1000 MG (500 MG,2 IN 1 D)
     Route: 048
     Dates: start: 20210329
  31. NOXAFIL [Concomitant]
     Active Substance: POSACONAZOLE
     Indication: Neutropenic sepsis
     Dosage: MG/250 [ML/H] (1 IN 1 D)
     Route: 042
     Dates: start: 20210407
  32. ELECTROLYTES NOS\MINERALS [Concomitant]
     Active Substance: ELECTROLYTES NOS\MINERALS
     Indication: Neutropenic sepsis
     Dosage: 100 ML/H (1 IN 1 D)
     Route: 042
     Dates: start: 20210407
  33. POSACONAZOLE [Concomitant]
     Active Substance: POSACONAZOLE
     Indication: Neutropenic sepsis
     Dosage: 300 MG (300 MG,1 IN 1 D)
     Route: 048
     Dates: start: 20210409
  34. INNOHEP [Concomitant]
     Active Substance: TINZAPARIN SODIUM
     Indication: Prophylaxis
     Dosage: 4500 IE (1 IN 1 D)
     Route: 042
     Dates: start: 20220402
  35. TAZOBACTAM [Concomitant]
     Active Substance: TAZOBACTAM
     Indication: Infection
     Dosage: 13.5 GM (4.5 GM,3 IN 1 D)
     Route: 042
     Dates: start: 20220407, end: 20220409

REACTIONS (8)
  - Gastroenteritis [Recovered/Resolved]
  - Syncope [Recovered/Resolved]
  - Brain injury [Not Recovered/Not Resolved]
  - Rib fracture [Not Recovered/Not Resolved]
  - Tachycardia [Recovered/Resolved]
  - Injury [Unknown]
  - Fall [Unknown]
  - Atrial fibrillation [Recovered/Resolved]

NARRATIVE: CASE EVENT DATE: 20220427
